FAERS Safety Report 13896855 (Version 1)
Quarter: 2017Q3

REPORT INFORMATION
  Report Type: Spontaneous
  Country: TH (occurrence: TH)
  Receive Date: 20170823
  Receipt Date: 20170823
  Transmission Date: 20171127
  Serious: Yes (Other)
  Sender: FDA-Public Use
  Company Number: TH-AVADEL LEGACY PHARMACEUTICALS, LLC-2017AVA00073

PATIENT

DRUGS (2)
  1. EPHEDRINE SULFATE. [Suspect]
     Active Substance: EPHEDRINE SULFATE
     Indication: HYPOTENSION
     Dosage: 30 MG, TOTAL
     Route: 064
  2. NOREPINEPHRINE. [Suspect]
     Active Substance: NOREPINEPHRINE
     Indication: HYPOTENSION
     Dosage: 5 ?G, TOTAL
     Route: 064

REACTIONS (3)
  - Neonatal tachypnoea [Unknown]
  - Foetal exposure during pregnancy [Recovered/Resolved]
  - Neonatal tachycardia [Unknown]
